FAERS Safety Report 11611832 (Version 1)
Quarter: 2015Q4

REPORT INFORMATION
  Report Type: Spontaneous
  Country: US (occurrence: US)
  Receive Date: 20151008
  Receipt Date: 20151008
  Transmission Date: 20160304
  Serious: No
  Sender: FDA-Public Use
  Company Number: US-MALLINCKRODT-T201404061

PATIENT

DRUGS (1)
  1. MIXED AMPHETAMINE SALTS [Suspect]
     Active Substance: AMPHETAMINE ASPARTATE\AMPHETAMINE SULFATE\DEXTROAMPHETAMINE SACCHARATE\DEXTROAMPHETAMINE SULFATE
     Indication: PRODUCT USED FOR UNKNOWN INDICATION
     Dosage: 15 MG, UNK (WOULD TAKE 7.5 MG)
     Route: 065

REACTIONS (8)
  - Incontinence [Unknown]
  - Decreased appetite [Unknown]
  - Staring [Unknown]
  - Micturition urgency [Unknown]
  - Drug ineffective [Unknown]
  - Pollakiuria [Unknown]
  - Heart rate increased [Unknown]
  - Anxiety [Unknown]
